FAERS Safety Report 5724378-1 (Version None)
Quarter: 2008Q2

REPORT INFORMATION
  Report Type: 
  Country: None (occurrence: None)
  Receive Date: 20080430
  Receipt Date: 20080418
  Transmission Date: 20081010
  Serious: Yes (Other)
  Sender: FDA-Public Use
  Company Number: US-PFIZER INC-2008035015

PATIENT
  Sex: Male
  Weight: 67.272 kg

DRUGS (1)
  1. DILANTIN [Suspect]
     Indication: CONVULSION

REACTIONS (8)
  - ACTIVITIES OF DAILY LIVING IMPAIRED [None]
  - ANTICONVULSANT DRUG LEVEL DECREASED [None]
  - BALANCE DISORDER [None]
  - CONVULSION [None]
  - DYSPHEMIA [None]
  - EXPRESSIVE LANGUAGE DISORDER [None]
  - EYE MOVEMENT DISORDER [None]
  - MEMORY IMPAIRMENT [None]
